FAERS Safety Report 5748581-X (Version None)
Quarter: 2008Q2

REPORT INFORMATION
  Report Type: 
  Country: None (occurrence: None)
  Receive Date: 20080523
  Receipt Date: 20080513
  Transmission Date: 20081010
  Serious: Yes (Death, Other)
  Sender: FDA-Public Use
  Company Number: US-PFIZER INC-2008042443

PATIENT
  Sex: Male
  Weight: 70.3 kg

DRUGS (3)
  1. DILANTIN [Suspect]
     Indication: GRAND MAL CONVULSION
     Dates: start: 19980101
  2. DARVOCET [Concomitant]
  3. XANAX [Concomitant]

REACTIONS (5)
  - BRAIN NEOPLASM [None]
  - DEATH [None]
  - METASTASIS [None]
  - NEOPLASM MALIGNANT [None]
  - PNEUMONIA [None]
